FAERS Safety Report 5340335-1 (Version None)
Quarter: 2007Q2

REPORT INFORMATION
  Report Type: 
  Country: None (occurrence: None)
  Receive Date: 20070531
  Receipt Date: 20070523
  Transmission Date: 20071010
  Serious: Yes (Other)
  Sender: FDA-Public Use
  Company Number: JP-MERCK-0705USA05001

PATIENT
  Age: 48 Year
  Sex: Male

DRUGS (1)
  1. PEPCID RPD [Suspect]
     Route: 048
     Dates: start: 20070503

REACTIONS (1)
  - OCULOMUCOCUTANEOUS SYNDROME [None]
